FAERS Safety Report 9418038 (Version 1)
Quarter: 2013Q3

REPORT INFORMATION
  Report Type: Spontaneous
  Country: US (occurrence: US)
  Receive Date: 20130724
  Receipt Date: 20130724
  Transmission Date: 20140515
  Serious: Yes (Other)
  Sender: FDA-Public Use
  Company Number: US-ASTRAZENECA-2013SE53075

PATIENT
  Age: 42 Year
  Sex: Female

DRUGS (3)
  1. SEROQUEL XR [Suspect]
     Route: 048
  2. CLONIPINE [Concomitant]
  3. ZYPREXA IM [Concomitant]
     Dosage: PRN

REACTIONS (2)
  - Intestinal obstruction [Unknown]
  - Urinary retention [Unknown]
